FAERS Safety Report 9183148 (Version 1)
Quarter: 2013Q1

REPORT INFORMATION
  Report Type: Spontaneous
  Country: US (occurrence: US)
  Receive Date: 20130322
  Receipt Date: 20130322
  Transmission Date: 20140127
  Serious: No
  Sender: FDA-Public Use
  Company Number: US-BRISTOL-MYERS SQUIBB COMPANY-16914178

PATIENT
  Age: 72 Year
  Sex: Male

DRUGS (1)
  1. ERBITUX [Suspect]
     Indication: THROAT CANCER
     Dosage: NO OF TREATMENTS 8 A WEEK AGO

REACTIONS (5)
  - Skin fissures [Recovering/Resolving]
  - Pain in extremity [Recovering/Resolving]
  - Rash [Unknown]
  - Nausea [Unknown]
  - Stomatitis [Unknown]
